FAERS Safety Report 24382663 (Version 1)
Quarter: 2024Q4

REPORT INFORMATION
  Report Type: Report from Study
  Country: FR (occurrence: FR)
  Receive Date: 20241001
  Receipt Date: 20241001
  Transmission Date: 20250115
  Serious: Yes (Other)
  Sender: LEO PHARM
  Company Number: FR-LEO Pharma-373863

PATIENT
  Age: 27 Year
  Sex: Female

DRUGS (1)
  1. ADBRY [Suspect]
     Active Substance: TRALOKINUMAB-LDRM
     Indication: Dermatitis atopic
     Dates: start: 202402, end: 202406

REACTIONS (3)
  - Dermatitis exfoliative generalised [Unknown]
  - Injection site pain [Unknown]
  - Dry eye [Unknown]
